FAERS Safety Report 22633592 (Version 1)
Quarter: 2023Q2

REPORT INFORMATION
  Report Type: Spontaneous
  Country: CA (occurrence: CA)
  Receive Date: 20230623
  Receipt Date: 20230623
  Transmission Date: 20230722
  Serious: Yes (Other)
  Sender: FDA-Public Use
  Company Number: CA-MYLANLABS-2023M1063983

PATIENT
  Age: 50 Year
  Sex: Female

DRUGS (1)
  1. SYNTHROID [Suspect]
     Active Substance: LEVOTHYROXINE SODIUM
     Indication: Hypothyroidism
     Dosage: 75 MICROGRAM
     Route: 048

REACTIONS (4)
  - Hyperthyroidism [Unknown]
  - Overdose [Unknown]
  - Wrong technique in product usage process [Unknown]
  - Intentional product use issue [Unknown]
